FAERS Safety Report 6454659-8 (Version None)
Quarter: 2009Q4

REPORT INFORMATION
  Report Type: 
  Country: None (occurrence: None)
  Receive Date: 20091118
  Receipt Date: 20091102
  Transmission Date: 20100525
  Serious: Yes (Other)
  Sender: FDA-Public Use
  Company Number: 1-20604120

PATIENT
  Age: 45 Year

DRUGS (10)
  1. LAMOTRIGINE [Suspect]
     Indication: PARTIAL SEIZURES
     Dosage: 200 MG TWICE DAILY
  2. RISPERIDONE [Concomitant]
  3. CYCLOBENZAPRINE [Concomitant]
  4. CLONAZEPAM [Concomitant]
  5. OXYCONTIN [Concomitant]
  6. FOLIC ACID [Concomitant]
  7. CLOPIDOGREL [Concomitant]
  8. INSULIN [Concomitant]
  9. ZOLPIDEM [Concomitant]
  10. LASIX [Concomitant]

REACTIONS (2)
  - MENTAL DISORDER [None]
  - WITHDRAWAL SYNDROME [None]
